FAERS Safety Report 9471479 (Version 2)
Quarter: 2013Q3

REPORT INFORMATION
  Report Type: Spontaneous
  Country: BR (occurrence: BR)
  Receive Date: 20130822
  Receipt Date: 20130828
  Transmission Date: 20140515
  Serious: Yes (Other)
  Sender: FDA-Public Use
  Company Number: BR-JNJFOC-20130808880

PATIENT
  Sex: Female
  Weight: 63 kg

DRUGS (4)
  1. REMICADE [Suspect]
     Indication: CROHN^S DISEASE
     Route: 042
     Dates: start: 20130814
  2. REMICADE [Suspect]
     Indication: CROHN^S DISEASE
     Route: 042
     Dates: start: 201301
  3. AZATHIOPRINE [Concomitant]
     Route: 065
  4. MAREVAN [Concomitant]
     Indication: ANTICOAGULANT THERAPY
     Dosage: ANTICOAGULANT DUE TO ANTIPHOSPHOLIPID??ANTIBODY SYNDROME
     Route: 065

REACTIONS (2)
  - Breast mass [Unknown]
  - Faecal calprotectin [Unknown]
